FAERS Safety Report 10188876 (Version 2)
Quarter: 2014Q3

REPORT INFORMATION
  Report Type: Spontaneous
  Country: US (occurrence: US)
  Receive Date: 20140522
  Receipt Date: 20140828
  Transmission Date: 20150326
  Serious: No
  Sender: FDA-Public Use
  Company Number: US-PFIZER INC-2014138684

PATIENT
  Age: 60 Year
  Sex: Female

DRUGS (1)
  1. XELJANZ [Suspect]
     Active Substance: TOFACITINIB CITRATE
     Indication: RHEUMATOID ARTHRITIS
     Dosage: 5 MG, 2X/DAY
     Dates: start: 201304

REACTIONS (4)
  - Drug ineffective [Unknown]
  - Eye pain [Unknown]
  - Visual acuity reduced [Unknown]
  - Eye disorder [Unknown]

NARRATIVE: CASE EVENT DATE: 201403
